FAERS Safety Report 25604165 (Version 1)
Quarter: 2025Q3

REPORT INFORMATION
  Report Type: Spontaneous
  Country: US (occurrence: US)
  Receive Date: 20250725
  Receipt Date: 20250725
  Transmission Date: 20251020
  Serious: Yes (Other)
  Sender: ACCORD
  Company Number: US-MLMSERVICE-20250710-PI574211-00306-1

PATIENT
  Age: 59 Year
  Sex: Female

DRUGS (3)
  1. TACROLIMUS [Suspect]
     Active Substance: TACROLIMUS
     Indication: Immunosuppressant drug therapy
  2. MYCOPHENOLATE MOFETIL [Concomitant]
     Active Substance: MYCOPHENOLATE MOFETIL
     Indication: Immunosuppressant drug therapy
  3. PREDNISONE [Concomitant]
     Active Substance: PREDNISONE
     Indication: Immunosuppressant drug therapy

REACTIONS (5)
  - Renal failure [Recovering/Resolving]
  - Thrombotic microangiopathy [Recovering/Resolving]
  - Pulmonary hypertension [Recovering/Resolving]
  - Vascular injury [Recovering/Resolving]
  - Arteriovenous fistula [Unknown]
